FAERS Safety Report 13535016 (Version 1)
Quarter: 2017Q2

REPORT INFORMATION
  Report Type: Report from Study
  Country: DE (occurrence: DE)
  Receive Date: 20170511
  Receipt Date: 20170511
  Transmission Date: 20170830
  Serious: Yes (Death)
  Sender: FDA-Public Use
  Company Number: DE-ACTELION-A-CH2017-149253

PATIENT
  Age: 62 Year
  Sex: Female

DRUGS (3)
  1. UPTRAVI [Suspect]
     Active Substance: SELEXIPAG
     Indication: PULMONARY ARTERIAL HYPERTENSION
     Dosage: 400 MCG, BID
     Route: 048
     Dates: start: 20170126
  2. UPTRAVI [Suspect]
     Active Substance: SELEXIPAG
     Dosage: 500 MCG, BID
     Route: 048
     Dates: start: 20170409, end: 20170430
  3. REVATIO [Concomitant]
     Active Substance: SILDENAFIL CITRATE
     Indication: PULMONARY ARTERIAL HYPERTENSION
     Route: 048

REACTIONS (8)
  - Viral upper respiratory tract infection [Unknown]
  - Nausea [Unknown]
  - Oedema [Unknown]
  - Tongue discomfort [Unknown]
  - Death [Fatal]
  - Lip dry [Unknown]
  - Diarrhoea [Unknown]
  - Respiratory disorder [Unknown]

NARRATIVE: CASE EVENT DATE: 20170127
